FAERS Safety Report 20306026 (Version 1)
Quarter: 2022Q1

REPORT INFORMATION
  Report Type: Spontaneous
  Country: US (occurrence: US)
  Receive Date: 20220106
  Receipt Date: 20220106
  Transmission Date: 20220424
  Serious: No
  Sender: FDA-Public Use
  Company Number: US-MYLANLABS-2021M1095834

PATIENT
  Age: 6 Year
  Sex: Male

DRUGS (1)
  1. CYSTAGON [Suspect]
     Active Substance: CYSTEAMINE BITARTRATE
     Indication: Cystinosis
     Dosage: 250 MILLIGRAM, Q6H
     Route: 048
     Dates: start: 202006

REACTIONS (1)
  - Weight increased [Unknown]

NARRATIVE: CASE EVENT DATE: 20200601
